FAERS Safety Report 4386184-2 (Version None)
Quarter: 2004Q2

REPORT INFORMATION
  Report Type: 
  Country: None (occurrence: None)
  Receive Date: 20040628
  Receipt Date: 20040628
  Transmission Date: 20050107
  Serious: Yes (Disabling)
  Sender: FDA-Public Use
  Company Number: None

PATIENT
  Age: 83 Year
  Sex: Female

DRUGS (9)
  1. ABILIFY [Suspect]
     Indication: PSYCHOTIC DISORDER
     Dosage: 5-10 MG DAILY PO
     Route: 048
     Dates: start: 20040413, end: 20040611
  2. PAXIL [Concomitant]
  3. REQUIP [Concomitant]
  4. SINEMET [Concomitant]
  5. ANANTADINE [Concomitant]
  6. PREVACID [Concomitant]
  7. WATER PILL [Concomitant]
  8. K + (POTASSIUM) [Concomitant]
  9. M.V.I. [Concomitant]

REACTIONS (4)
  - ACTIVITIES OF DAILY LIVING IMPAIRED [None]
  - DECREASED ACTIVITY [None]
  - FEELING COLD [None]
  - GAIT DISTURBANCE [None]
